FAERS Safety Report 8805624 (Version 2)
Quarter: 2015Q3

REPORT INFORMATION
  Report Type: Report from Study
  Country: US (occurrence: US)
  Receive Date: 20120924
  Receipt Date: 20150702
  Transmission Date: 20151125
  Serious: Yes (Death, Other)
  Sender: FDA-Public Use
  Company Number: US-ROCHE-1129199

PATIENT
  Age: 66 Year
  Sex: Female
  Weight: 59.6 kg

DRUGS (53)
  1. AVASTIN [Suspect]
     Active Substance: BEVACIZUMAB
     Indication: METASTASES TO LIVER
     Route: 042
  2. AVASTIN [Suspect]
     Active Substance: BEVACIZUMAB
     Route: 065
     Dates: start: 20051004
  3. KEFLEX [Concomitant]
     Active Substance: CEPHALEXIN
  4. CYCLOPHOSPHAMIDE. [Concomitant]
     Active Substance: CYCLOPHOSPHAMIDE
     Route: 065
  5. XELODA [Concomitant]
     Active Substance: CAPECITABINE
     Route: 065
  6. CYTOXAN [Concomitant]
     Active Substance: CYCLOPHOSPHAMIDE
     Route: 042
  7. ZOMETA [Concomitant]
     Active Substance: ZOLEDRONIC ACID
     Route: 042
  8. PROCRIT [Concomitant]
     Active Substance: ERYTHROPOIETIN
     Route: 058
  9. NEUPOGEN [Suspect]
     Active Substance: FILGRASTIM
     Indication: PRODUCT USED FOR UNKNOWN INDICATION
     Route: 058
  10. FUROSEMIDE. [Concomitant]
     Active Substance: FUROSEMIDE
     Route: 048
  11. NAVELBINE [Concomitant]
     Active Substance: VINORELBINE TARTRATE
  12. ZOMETA [Concomitant]
     Active Substance: ZOLEDRONIC ACID
     Route: 042
  13. BENADRYL [Concomitant]
     Active Substance: DIPHENHYDRAMINE HYDROCHLORIDE
     Route: 042
  14. NORCO [Concomitant]
     Active Substance: ACETAMINOPHEN\HYDROCODONE BITARTRATE
  15. TYLENOL [Concomitant]
     Active Substance: ACETAMINOPHEN
     Route: 065
  16. VP-16 [Concomitant]
     Active Substance: ETOPOSIDE
  17. PRILOSEC [Concomitant]
     Active Substance: OMEPRAZOLE MAGNESIUM
     Route: 065
  18. FAMOTIDINE. [Concomitant]
     Active Substance: FAMOTIDINE
     Route: 065
  19. MEGESTROL ACETATE. [Concomitant]
     Active Substance: MEGESTROL ACETATE
     Route: 048
  20. SENOKOT [Concomitant]
     Active Substance: SENNOSIDES
  21. QUININE SULFATE. [Concomitant]
     Active Substance: QUININE SULFATE
     Route: 048
  22. LEVAQUIN [Concomitant]
     Active Substance: LEVOFLOXACIN
     Route: 048
  23. PRILOSEC [Concomitant]
     Active Substance: OMEPRAZOLE MAGNESIUM
     Route: 065
  24. NEUMEGA [Concomitant]
     Active Substance: OPRELVEKIN
     Route: 065
  25. TAXOTERE [Suspect]
     Active Substance: DOCETAXEL
     Indication: PRODUCT USED FOR UNKNOWN INDICATION
     Route: 065
  26. COMPAZINE [Concomitant]
     Active Substance: PROCHLORPERAZINE MALEATE
     Route: 048
  27. METHOTREXATE [Concomitant]
     Active Substance: METHOTREXATE
     Route: 042
  28. 5-FLUOROURACIL [Concomitant]
     Active Substance: FLUOROURACIL
     Route: 042
  29. NEULASTA [Concomitant]
     Active Substance: PEGFILGRASTIM
     Route: 065
  30. XYLOCAINE [Concomitant]
     Active Substance: LIDOCAINE HYDROCHLORIDE
  31. PEPCID [Concomitant]
     Active Substance: FAMOTIDINE
     Route: 065
  32. FASLODEX [Concomitant]
     Active Substance: FULVESTRANT
     Route: 065
  33. ALTEPLASE [Concomitant]
     Active Substance: ALTEPLASE
     Route: 065
  34. AVASTIN [Suspect]
     Active Substance: BEVACIZUMAB
     Indication: BREAST CANCER FEMALE
     Route: 042
     Dates: start: 20050627
  35. TRIAMTERENE. [Concomitant]
     Active Substance: TRIAMTERENE
     Dosage: 70-50 MG
     Route: 048
  36. WARFARIN SODIUM. [Concomitant]
     Active Substance: WARFARIN SODIUM
     Route: 048
  37. CEPHALEXIN MONOHYDRATE. [Concomitant]
     Active Substance: CEPHALEXIN MONOHYDRATE
     Route: 048
  38. ADRIAMYCIN [Concomitant]
     Active Substance: DOXORUBICIN HYDROCHLORIDE
  39. TAMOXIFEN [Concomitant]
     Active Substance: TAMOXIFEN
  40. FEMARA [Concomitant]
     Active Substance: LETROZOLE
  41. DOXIL [Concomitant]
     Active Substance: DOXORUBICIN HYDROCHLORIDE
  42. ZOFRAN [Concomitant]
     Active Substance: ONDANSETRON HYDROCHLORIDE
     Route: 048
  43. FAMVIR (UNITED STATES) [Concomitant]
     Route: 048
  44. GEMZAR [Concomitant]
     Active Substance: GEMCITABINE HYDROCHLORIDE
  45. SYNTHROID [Concomitant]
     Active Substance: LEVOTHYROXINE SODIUM
  46. NEUMEGA [Concomitant]
     Active Substance: OPRELVEKIN
     Dosage: 1500CC
     Route: 058
  47. HERCEPTIN [Concomitant]
     Active Substance: TRASTUZUMAB
     Route: 065
  48. AMITRIPTYLINE HCL [Concomitant]
     Active Substance: AMITRIPTYLINE
     Route: 048
  49. DIGOXIN. [Concomitant]
     Active Substance: DIGOXIN
     Route: 048
  50. LEVOTHYROXINE SODIUM. [Concomitant]
     Active Substance: LEVOTHYROXINE SODIUM
     Route: 048
  51. DIFLUCAN [Concomitant]
     Active Substance: FLUCONAZOLE
     Route: 065
  52. DIPHENHYDRAMINE HCL [Concomitant]
     Active Substance: DIPHENHYDRAMINE HYDROCHLORIDE
     Route: 065
  53. PROTONIX (UNITED STATES) [Concomitant]

REACTIONS (52)
  - Metastases to lung [Unknown]
  - Neutropenia [Unknown]
  - Weight fluctuation [Unknown]
  - Waist circumference increased [Unknown]
  - Pharyngeal erythema [Unknown]
  - Bladder dilatation [Unknown]
  - Syncope [Unknown]
  - Aortic valve incompetence [Unknown]
  - Renal neoplasm [Unknown]
  - Off label use [Unknown]
  - Catheter site erythema [Unknown]
  - Fatigue [Unknown]
  - Abdominal pain upper [Unknown]
  - Asthenia [Unknown]
  - Cellulitis [Unknown]
  - Dyspepsia [Unknown]
  - Epistaxis [Unknown]
  - Atelectasis [Unknown]
  - Ascites [Unknown]
  - Vomiting [Unknown]
  - Skin disorder [Unknown]
  - Metastases to bone [Unknown]
  - Dyspnoea [Unknown]
  - Oral disorder [Unknown]
  - Tongue ulceration [Unknown]
  - Feeding disorder [Unknown]
  - Constipation [Unknown]
  - Paraesthesia [Unknown]
  - Mitral valve incompetence [Unknown]
  - Haemoptysis [Unknown]
  - Pancytopenia [Unknown]
  - Thrombocytopenia [Unknown]
  - Chest pain [Unknown]
  - Pelvic fluid collection [Unknown]
  - Disease progression [Unknown]
  - Gastritis [Unknown]
  - Erythema [Unknown]
  - Laryngitis [Unknown]
  - Diarrhoea [Unknown]
  - Neuropathy peripheral [Unknown]
  - Haematocrit decreased [Unknown]
  - Death [Fatal]
  - Ocular hyperaemia [Unknown]
  - Dizziness [Unknown]
  - Fall [Unknown]
  - Hypoaesthesia [Unknown]
  - Tricuspid valve incompetence [Unknown]
  - Oral pain [Unknown]
  - Peripheral swelling [Unknown]
  - Oral mucosal erythema [Unknown]
  - Ecchymosis [Unknown]
  - Mitral valve disease [Unknown]

NARRATIVE: CASE EVENT DATE: 20060122
